FAERS Safety Report 8262824 (Version 4)
Quarter: 2015Q4

REPORT INFORMATION
  Report Type: Report from Study
  Country: SI (occurrence: SI)
  Receive Date: 20111124
  Receipt Date: 20151028
  Transmission Date: 20160305
  Serious: Yes (Hospitalization)
  Sender: FDA-Public Use
  Company Number: SI-AMGEN-SVNCT2011061162

PATIENT
  Age: 75 Year
  Sex: Female

DRUGS (7)
  1. TONOCARDIN [Concomitant]
     Dosage: 2 MG, UNK
     Route: 048
  2. AMLOPIN [Concomitant]
     Active Substance: AMLODIPINE BESYLATE
     Dosage: 5 MG, QD
     Route: 048
  3. VASILIP [Concomitant]
     Dosage: 10 MG, QD
     Route: 048
  4. RENVELA [Concomitant]
     Active Substance: SEVELAMER CARBONATE
     Dosage: 400 MG, UNK
     Route: 048
  5. CINACALCET HCL [Suspect]
     Active Substance: CINACALCET HYDROCHLORIDE
     Indication: HYPERPARATHYROIDISM SECONDARY
     Dosage: 30 MG, TID
     Route: 048
     Dates: start: 20110624, end: 20111023
  6. ARANESP [Concomitant]
     Active Substance: DARBEPOETIN ALFA
     Dosage: 20 MUG, QWK
  7. CALCII CARBONAS [Concomitant]
     Dosage: 1 G, UNK
     Route: 048

REACTIONS (1)
  - Renal transplant [Recovered/Resolved]

NARRATIVE: CASE EVENT DATE: 20111025
